FAERS Safety Report 19604124 (Version 2)
Quarter: 2023Q1

REPORT INFORMATION
  Report Type: Spontaneous
  Country: HR (occurrence: HR)
  Receive Date: 20210723
  Receipt Date: 20230331
  Transmission Date: 20230417
  Serious: Yes (Other)
  Sender: FDA-Public Use
  Company Number: HR-009507513-2107HRV006804

PATIENT
  Age: 66 Year
  Sex: Male

DRUGS (11)
  1. EFAVIRENZ [Suspect]
     Active Substance: EFAVIRENZ
     Indication: HIV infection
     Dosage: UNK
     Route: 048
     Dates: start: 200807
  2. RALTEGRAVIR POTASSIUM [Suspect]
     Active Substance: RALTEGRAVIR POTASSIUM
     Indication: HIV infection
     Dosage: UNK
     Dates: start: 201503
  3. ZIDOVUDINE [Suspect]
     Active Substance: ZIDOVUDINE
     Indication: HIV infection
     Dosage: UNK
     Dates: start: 200807, end: 200808
  4. LAMIVUDINE [Suspect]
     Active Substance: LAMIVUDINE
     Indication: HIV infection
     Dosage: UNK
     Dates: start: 200807, end: 201503
  5. ABACAVIR [Suspect]
     Active Substance: ABACAVIR
     Indication: HIV infection
     Dosage: UNK
     Dates: start: 200808, end: 201503
  6. INSULIN NOS [Concomitant]
     Active Substance: INSULIN NOS
  7. AMIODARONE [Concomitant]
     Active Substance: AMIODARONE
  8. ASPIRIN [Concomitant]
     Active Substance: ASPIRIN
  9. ATORVASTATIN [Concomitant]
     Active Substance: ATORVASTATIN
  10. TELMISARTAN [Concomitant]
     Active Substance: TELMISARTAN
  11. BISOPROLOL [Concomitant]
     Active Substance: BISOPROLOL

REACTIONS (4)
  - Myocardial infarction [Unknown]
  - Cardiac arrest [Recovered/Resolved]
  - Nephropathy [Unknown]
  - Hypertension [Unknown]

NARRATIVE: CASE EVENT DATE: 20141101
